FAERS Safety Report 23836740 (Version 1)
Quarter: 2024Q2

REPORT INFORMATION
  Report Type: Spontaneous
  Country: JP (occurrence: JP)
  Receive Date: 20240509
  Receipt Date: 20240509
  Transmission Date: 20240716
  Serious: Yes (Death, Other)
  Sender: FDA-Public Use
  Company Number: JP-ABBVIE-5751249

PATIENT

DRUGS (1)
  1. VENCLEXTA [Suspect]
     Active Substance: VENETOCLAX
     Indication: Acute myeloid leukaemia
     Route: 048

REACTIONS (6)
  - Death [Fatal]
  - Chronic graft versus host disease [Unknown]
  - Acute graft versus host disease [Unknown]
  - Acute myeloid leukaemia recurrent [Unknown]
  - Gene mutation identification test positive [Unknown]
  - Myelosuppression [Unknown]
